FAERS Safety Report 7449850-8 (Version None)
Quarter: 2011Q2

REPORT INFORMATION
  Report Type: 
  Country: None (occurrence: None)
  Receive Date: 20110502
  Receipt Date: 20110419
  Transmission Date: 20111010
  Serious: Yes (Disabling)
  Sender: FDA-Public Use
  Company Number: GB-BAYER-2011-025312

PATIENT
  Age: 44 Year
  Sex: Female

DRUGS (2)
  1. PROGESTOGENS [Concomitant]
     Indication: MENOPAUSAL SYMPTOMS
  2. MIRENA [Suspect]
     Route: 015

REACTIONS (1)
  - PREMENSTRUAL SYNDROME [None]
